FAERS Safety Report 21266129 (Version 1)
Quarter: 2022Q3

REPORT INFORMATION
  Report Type: Report from Study
  Country: PL (occurrence: PL)
  Receive Date: 20220829
  Receipt Date: 20220829
  Transmission Date: 20221026
  Serious: Yes (Death)
  Sender: FDA-Public Use
  Company Number: PL-BAYER-2022P011981

PATIENT
  Age: 70 Year
  Sex: Male

DRUGS (1)
  1. ILOPROST [Suspect]
     Active Substance: ILOPROST
     Indication: Pulmonary arterial hypertension
     Dosage: 6 INHALATIONS- 5UG
     Route: 055
     Dates: start: 20170816

REACTIONS (2)
  - Death [Fatal]
  - Drug dose omission by device [Unknown]

NARRATIVE: CASE EVENT DATE: 20220816
